FAERS Safety Report 8790802 (Version 1)
Quarter: 2012Q4

REPORT INFORMATION
  Report Type: Spontaneous
  Country: US (occurrence: None)
  Receive Date: 20120913
  Receipt Date: 20120913
  Transmission Date: 20130627
  Serious: No
  Sender: FDA-Public Use
  Company Number: None

PATIENT
  Age: 74 Year
  Sex: Female
  Weight: 77.11 kg

DRUGS (1)
  1. TRILIPIX [Suspect]
     Indication: CHOLESTEROL
     Dosage: 1 per day
     Dates: start: 20120726, end: 20120819

REACTIONS (7)
  - Cough [None]
  - Blood urine present [None]
  - Body temperature increased [None]
  - Chills [None]
  - Oedema peripheral [None]
  - Contusion [None]
  - Pain in extremity [None]
